FAERS Safety Report 6441664-0 (Version None)
Quarter: 2009Q4

REPORT INFORMATION
  Report Type: 
  Country: None (occurrence: None)
  Receive Date: 20091116
  Receipt Date: 20091106
  Transmission Date: 20100525
  Serious: No
  Sender: FDA-Public Use
  Company Number: DK-ASTRAZENECA-2009SE25409

PATIENT
  Age: 22 Year
  Sex: Female

DRUGS (3)
  1. SEROQUEL [Suspect]
     Indication: SCHIZOPHRENIA
     Route: 048
     Dates: start: 20080326, end: 20090330
  2. SEROQUEL [Suspect]
     Route: 048
     Dates: start: 20080330, end: 20090414
  3. SEROQUEL [Suspect]
     Route: 048
     Dates: start: 20090414

REACTIONS (1)
  - NEUTROPENIA [None]
